FAERS Safety Report 7434965-0 (Version None)
Quarter: 2011Q2

REPORT INFORMATION
  Report Type: 
  Country: None (occurrence: None)
  Receive Date: 20110415
  Receipt Date: 20110328
  Transmission Date: 20111010
  Serious: Yes (Other)
  Sender: FDA-Public Use
  Company Number: 2010MA001665

PATIENT
  Sex: Female
  Weight: 100.6985 kg

DRUGS (12)
  1. HALCION [Concomitant]
  2. DIPHENHYDRAMINE [Concomitant]
  3. KLOR-CON [Concomitant]
  4. CARDIZEM CD [Concomitant]
  5. LISINOPRIL [Concomitant]
  6. FISH OIL [Concomitant]
  7. NAPROSYN [Concomitant]
  8. METOCLOPRAMIDE [Suspect]
     Dosage: 10 MG; ; PO
     Route: 048
     Dates: start: 20081101, end: 20091101
  9. MULTI-VITAMINS [Concomitant]
  10. BENTYL [Concomitant]
  11. NEXIUM [Concomitant]
  12. PAXIL [Concomitant]

REACTIONS (6)
  - TARDIVE DYSKINESIA [None]
  - TONGUE PARALYSIS [None]
  - GLOSSODYNIA [None]
  - TANDEM GAIT TEST ABNORMAL [None]
  - DYSKINESIA [None]
  - MUSCLE SPASMS [None]
